FAERS Safety Report 16161393 (Version 1)
Quarter: 2019Q2

REPORT INFORMATION
  Report Type: Spontaneous
  Country: CN (occurrence: CN)
  Receive Date: 20190405
  Receipt Date: 20190405
  Transmission Date: 20190711
  Serious: Yes (Life-Threatening, Hospitalization, Other)
  Sender: FDA-Public Use
  Company Number: CN-STRIDES ARCOLAB LIMITED-2019SP002849

PATIENT
  Age: 47 Year
  Sex: Female

DRUGS (11)
  1. TACROLIMUS. [Suspect]
     Active Substance: TACROLIMUS
     Indication: RENAL TRANSPLANT
     Dosage: 3 MG, EVERY 12 HRS
     Route: 048
  2. PREDNISOLONE. [Suspect]
     Active Substance: PREDNISOLONE
     Indication: RENAL TRANSPLANT
     Dosage: 15 MG PER DAY
     Route: 048
  3. PREDNISOLONE. [Suspect]
     Active Substance: PREDNISOLONE
     Dosage: 5-10 MG PER DAY
     Route: 048
  4. PREDNISOLONE. [Suspect]
     Active Substance: PREDNISOLONE
     Dosage: 15 MG, EVERY 12 HRS
     Route: 048
  5. BASILIXIMAB [Suspect]
     Active Substance: BASILIXIMAB
     Indication: RENAL TRANSPLANT
     Dosage: 2 DF, UNKNOWN
     Route: 065
  6. TACROLIMUS. [Suspect]
     Active Substance: TACROLIMUS
     Dosage: 0.5 MG, EVERY 12 HRS
     Route: 048
  7. TACROLIMUS. [Suspect]
     Active Substance: TACROLIMUS
     Dosage: 0.5 MG, BID
     Route: 048
  8. MYCOPHENOLATE MOFETIL. [Suspect]
     Active Substance: MYCOPHENOLATE MOFETIL
     Indication: RENAL TRANSPLANT
     Dosage: 750 MG, EVERY 12 HRS
     Route: 048
  9. MYCOPHENOLATE MOFETIL. [Suspect]
     Active Substance: MYCOPHENOLATE MOFETIL
     Dosage: 500 MG, BID
     Route: 048
  10. METHYLPREDNISOLONE. [Suspect]
     Active Substance: METHYLPREDNISOLONE
     Indication: RENAL TRANSPLANT
     Dosage: UNK
     Route: 042
  11. MYCOPHENOLATE MOFETIL. [Suspect]
     Active Substance: MYCOPHENOLATE MOFETIL
     Dosage: 500 MG, EVERY 12 HRS
     Route: 048

REACTIONS (12)
  - Mucormycosis [Recovered/Resolved]
  - Ulcerative gastritis [Recovered/Resolved]
  - Pneumonia cytomegaloviral [Recovered/Resolved]
  - Faeces discoloured [Recovered/Resolved]
  - Oesophageal ulcer [Recovered/Resolved]
  - Gastritis erosive [Recovered/Resolved]
  - Chest pain [Recovered/Resolved]
  - Pneumonia [Recovered/Resolved]
  - Acute respiratory distress syndrome [Recovered/Resolved]
  - Pyrexia [Recovered/Resolved]
  - Gastrointestinal necrosis [Recovered/Resolved]
  - Gastric ulcer [Recovered/Resolved]
